FAERS Safety Report 19377035 (Version 2)
Quarter: 2022Q2

REPORT INFORMATION
  Report Type: Spontaneous
  Country: US (occurrence: US)
  Receive Date: 20210604
  Receipt Date: 20220527
  Transmission Date: 20220721
  Serious: No
  Sender: FDA-Public Use
  Company Number: US-PERRIGO-21US002706

PATIENT
  Age: 56 Year
  Sex: Male
  Weight: 65.76 kg

DRUGS (1)
  1. DICLOFENAC SODIUM [Suspect]
     Active Substance: DICLOFENAC SODIUM
     Indication: Pain
     Dosage: UNKNOWN, SINGLE
     Route: 061
     Dates: start: 20210217, end: 20210217

REACTIONS (2)
  - Headache [Recovered/Resolved]
  - Perfume sensitivity [Unknown]

NARRATIVE: CASE EVENT DATE: 20210201
